FAERS Safety Report 8574384-7 (Version None)
Quarter: 2012Q3

REPORT INFORMATION
  Report Type: 
  Country: None (occurrence: None)
  Receive Date: 20120806
  Receipt Date: 20120723
  Transmission Date: 20120928
  Serious: Yes (Hospitalization)
  Sender: FDA-Public Use
  Company Number: CH-ROCHE-1093708

PATIENT
  Age: 66 Year
  Sex: Female

DRUGS (8)
  1. HEPARIN CALCIUM [Concomitant]
     Dosage: DOSE:500 LU
     Route: 042
  2. VALIUM [Suspect]
     Indication: PRODUCT USED FOR UNKNOWN INDICATION
     Route: 048
     Dates: start: 20120320, end: 20120326
  3. BUPRENORPHINE HCL [Interacting]
     Indication: PRODUCT USED FOR UNKNOWN INDICATION
     Route: 060
     Dates: start: 20120327, end: 20120328
  4. ACETAMINOPHEN [Concomitant]
     Route: 048
  5. ZOLPIDEM TARTRATE [Interacting]
     Indication: PRODUCT USED FOR UNKNOWN INDICATION
     Route: 048
     Dates: start: 20120327
  6. ACEMETACIN [Concomitant]
     Route: 048
  7. LORAZEPAM [Interacting]
     Indication: PRODUCT USED FOR UNKNOWN INDICATION
     Route: 048
     Dates: start: 20120327
  8. ESOMEPRAZOLE MAGNESIUM [Concomitant]
     Route: 048

REACTIONS (6)
  - CONFUSIONAL STATE [None]
  - DRUG INTERACTION [None]
  - BRADYPNOEA [None]
  - MEDICATION ERROR [None]
  - SOMNOLENCE [None]
  - OXYGEN SATURATION DECREASED [None]
